FAERS Safety Report 18740974 (Version 2)
Quarter: 2021Q4

REPORT INFORMATION
  Report Type: Spontaneous
  Country: US (occurrence: US)
  Receive Date: 20210114
  Receipt Date: 20211018
  Transmission Date: 20220303
  Serious: No
  Sender: FDA-Public Use
  Company Number: US-PFIZER INC-2020467983

PATIENT
  Age: 64 Year
  Sex: Female

DRUGS (14)
  1. IBRANCE [Suspect]
     Active Substance: PALBOCICLIB
     Indication: Breast cancer female
     Dosage: 125 MG, CYCLIC (ONCE DAILY ON DAYS 1 TO 21, FOLLOWED BY 7 DAYS OF REST, REPEATED EVERY 28 DAYS)
     Route: 048
     Dates: start: 202011
  2. IBRANCE [Suspect]
     Active Substance: PALBOCICLIB
     Dosage: 75 MG, CYCLIC (ONCE DAILY ON DAYS 1 TO 21, FOLLOWED BY 7 DAYS OF REST, REPEATED EVERY 28 DAYS)
     Route: 048
  3. IBRANCE [Suspect]
     Active Substance: PALBOCICLIB
     Dosage: 1 TABLET, CYCLIC (ONCE DAILY ON DAYS 1 TO 21, FOLLOWED BY 7 DAYS OF REST, REPEATED EVERY 28 DAYS)
     Route: 048
  4. NAPROXEN [Concomitant]
     Active Substance: NAPROXEN
     Dosage: UNK
  5. ATORVASTATIN CALCIUM [Concomitant]
     Active Substance: ATORVASTATIN CALCIUM
     Dosage: UNK
  6. LEVOTHYROXINE SODIUM [Concomitant]
     Active Substance: LEVOTHYROXINE SODIUM
     Dosage: UNK
  7. CYMBALTA [Concomitant]
     Active Substance: DULOXETINE HYDROCHLORIDE
     Dosage: UNK
  8. PROTONIX [Concomitant]
     Active Substance: PANTOPRAZOLE SODIUM
     Dosage: UNK
  9. LYRICA [Concomitant]
     Active Substance: PREGABALIN
     Dosage: UNK
  10. VITAMIN C [Concomitant]
     Active Substance: ASCORBIC ACID
     Dosage: UNK
  11. AMBRISENTAN [Concomitant]
     Active Substance: AMBRISENTAN
     Dosage: UNK
  12. CHOLECALCIFEROL [Concomitant]
     Active Substance: CHOLECALCIFEROL
     Dosage: UNK
  13. IBUPROFEN [Concomitant]
     Active Substance: IBUPROFEN
     Dosage: UNK
  14. DECONEX [GUAIFENESIN;PHENYLEPHRINE HYDROCHLORIDE] [Concomitant]
     Dosage: UNK

REACTIONS (3)
  - Nervous system disorder [Unknown]
  - Vertigo [Unknown]
  - Product dose omission issue [Unknown]
